FAERS Safety Report 15669475 (Version 1)
Quarter: 2018Q4

REPORT INFORMATION
  Report Type: Spontaneous
  Country: US (occurrence: US)
  Receive Date: 20181129
  Receipt Date: 20181129
  Transmission Date: 20190205
  Serious: No
  Sender: FDA-Public Use
  Company Number: US-TEVA-004077

PATIENT
  Age: 73 Year
  Sex: Female
  Weight: 61.2 kg

DRUGS (3)
  1. ZONEGRAN [Concomitant]
     Active Substance: ZONISAMIDE
     Indication: BIPOLAR DISORDER
     Dates: start: 20041125
  2. MIRTAZAPINE ORALLY DISINTEGRATING TABLETS 15MG,30MG [Suspect]
     Active Substance: MIRTAZAPINE
     Indication: INSOMNIA
     Dosage: 15 MILLIGRAM DAILY; 15.00 MG, QHS
     Route: 048
     Dates: start: 20050202
  3. TOPROL XL [Concomitant]
     Active Substance: METOPROLOL SUCCINATE
     Indication: HYPERTENSION
     Dosage: 25 MILLIGRAM DAILY; 1.00 TABLET, QD
     Route: 048

REACTIONS (2)
  - Pain in extremity [Not Recovered/Not Resolved]
  - Rash pruritic [Recovered/Resolved]

NARRATIVE: CASE EVENT DATE: 20050202
